FAERS Safety Report 8487779-7 (Version None)
Quarter: 2012Q2

REPORT INFORMATION
  Report Type: 
  Country: None (occurrence: None)
  Receive Date: 20120402
  Receipt Date: 20101215
  Transmission Date: 20120825
  Serious: Yes (Other)
  Sender: FDA-Public Use
  Company Number: PHHY2010US72218

PATIENT
  Age: 49 Year
  Sex: Female
  Weight: 109.8 kg

DRUGS (1)
  1. EXFORGE [Suspect]
     Dosage: 160/5 MG, HALF DAILY, ORAL
     Route: 048
     Dates: start: 20100101, end: 20101025

REACTIONS (4)
  - MALAISE [None]
  - NAUSEA [None]
  - HEART RATE INCREASED [None]
  - WRONG TECHNIQUE IN DRUG USAGE PROCESS [None]
